FAERS Safety Report 9242648 (Version 3)
Quarter: 2013Q2

REPORT INFORMATION
  Report Type: Spontaneous
  Country: FR (occurrence: FR)
  Receive Date: 20130419
  Receipt Date: 20130604
  Transmission Date: 20140414
  Serious: Yes (Life-Threatening, Hospitalization)
  Sender: FDA-Public Use
  Company Number: FR-GLAXOSMITHKLINE-B0883092A

PATIENT
  Age: 38 Year
  Sex: Female

DRUGS (13)
  1. NIMBEX [Suspect]
     Indication: ANAESTHESIA
     Dosage: 6MG PER DAY
     Route: 042
     Dates: start: 20111123, end: 20111123
  2. ATROPINE [Suspect]
     Dosage: 1MG SINGLE DOSE
     Route: 042
     Dates: start: 20111123, end: 20111123
  3. NAROPEINE [Suspect]
     Indication: ANAESTHESIA
     Dosage: 7.5MG SINGLE DOSE
     Route: 042
     Dates: start: 20111123, end: 20111123
  4. DROLEPTAN [Suspect]
     Indication: PROPHYLAXIS
     Dosage: 100MG SINGLE DOSE
     Route: 042
     Dates: start: 20111123, end: 20111123
  5. SPASFON [Suspect]
     Indication: GASTROINTESTINAL DISORDER
     Dosage: 2UNIT PER DAY
     Route: 042
     Dates: start: 20111123, end: 20111123
  6. SUPRANE [Suspect]
     Indication: ANAESTHESIA
     Route: 055
     Dates: start: 20111123, end: 20111123
  7. PROPOFOL [Suspect]
     Indication: ANAESTHESIA
     Dosage: 150MG SINGLE DOSE
     Route: 042
     Dates: start: 20111123, end: 20111123
  8. SUFENTANIL [Suspect]
     Indication: ANAESTHESIA
     Route: 042
     Dates: start: 20111123, end: 20111123
  9. ONDANSETRON [Suspect]
     Indication: PROPHYLAXIS
     Dosage: 1UNIT SINGLE DOSE
     Route: 042
     Dates: start: 20111123, end: 20111123
  10. PROSTIGMINE [Suspect]
     Dosage: 2.5MG SINGLE DOSE
     Route: 042
     Dates: start: 20111123, end: 20111123
  11. CEFAZOLINE [Suspect]
     Indication: PROPHYLAXIS
     Dosage: 1UNIT SINGLE DOSE
     Route: 042
     Dates: start: 20111123, end: 20111123
  12. PERFALGAN [Suspect]
     Indication: PAIN
     Dosage: 1UNIT PER DAY
     Route: 042
     Dates: start: 20111123, end: 20111123
  13. PROFENID [Suspect]
     Indication: PAIN
     Route: 042
     Dates: start: 20111123, end: 20111123

REACTIONS (10)
  - Circulatory collapse [Recovered/Resolved]
  - Dyspnoea [Recovered/Resolved]
  - Hypoxia [Recovered/Resolved]
  - Myocardial stunning [Recovered/Resolved]
  - Hypotension [Unknown]
  - Tachypnoea [Unknown]
  - Oxygen saturation decreased [Unknown]
  - Rales [Unknown]
  - Interstitial lung disease [Unknown]
  - Stress cardiomyopathy [Unknown]
